FAERS Safety Report 12584577 (Version 2)
Quarter: 2016Q3

REPORT INFORMATION
  Report Type: Spontaneous
  Country: BR (occurrence: BR)
  Receive Date: 20160722
  Receipt Date: 20160801
  Transmission Date: 20161109
  Serious: Yes (Other)
  Sender: FDA-Public Use
  Company Number: ALCN2016BR004970

PATIENT
  Age: 99 Year
  Sex: Female
  Weight: 49 kg

DRUGS (2)
  1. TOBREX [Suspect]
     Active Substance: TOBRAMYCIN
     Indication: CONJUNCTIVITIS
     Dosage: UNK
     Route: 047
     Dates: start: 20160712, end: 20160713
  2. NORIPURUM FOLICO [Concomitant]
     Active Substance: FOLIC ACID\IRON POLYMALTOSE
     Indication: ANAEMIA
     Dosage: 1 DF, QD
     Route: 048
     Dates: start: 2014

REACTIONS (5)
  - Ocular hyperaemia [Recovering/Resolving]
  - Eye pruritus [Recovering/Resolving]
  - Corneal lesion [Recovering/Resolving]
  - Face oedema [Recovering/Resolving]
  - Prescription drug used without a prescription [Recovering/Resolving]

NARRATIVE: CASE EVENT DATE: 20160713
